FAERS Safety Report 9424119 (Version 2)
Quarter: 2013Q3

REPORT INFORMATION
  Report Type: Spontaneous
  Country: US (occurrence: US)
  Receive Date: 20130729
  Receipt Date: 20130822
  Transmission Date: 20140515
  Serious: No
  Sender: FDA-Public Use
  Company Number: US-009507513-1307USA014707

PATIENT
  Age: 59 Year
  Sex: Male

DRUGS (2)
  1. DULERA [Suspect]
     Indication: ASTHMA
     Dosage: 2 INHALATIONS TWICE DAILY
     Route: 055
     Dates: start: 20130530
  2. ALBUTEROL [Concomitant]

REACTIONS (2)
  - Therapeutic response decreased [Recovered/Resolved]
  - Product quality issue [Unknown]
